FAERS Safety Report 8484416-2 (Version None)
Quarter: 2012Q3

REPORT INFORMATION
  Report Type: 
  Country: None (occurrence: None)
  Receive Date: 20120703
  Receipt Date: 20120629
  Transmission Date: 20120928
  Serious: Yes (Other)
  Sender: FDA-Public Use
  Company Number: PHHY2012DE050356

PATIENT
  Sex: Male

DRUGS (1)
  1. RASILEZ [Suspect]
     Dosage: 1 DF, QD
     Route: 048
     Dates: start: 20110901, end: 20120101

REACTIONS (1)
  - ATRIAL FIBRILLATION [None]
